FAERS Safety Report 7864032-3 (Version None)
Quarter: 2011Q4

REPORT INFORMATION
  Report Type: 
  Country: None (occurrence: None)
  Receive Date: 20111028
  Receipt Date: 20111025
  Transmission Date: 20120403
  Serious: No
  Sender: FDA-Public Use
  Company Number: US-BIOGENIDEC-2011BI040903

PATIENT
  Age: 48 Year
  Sex: Female

DRUGS (1)
  1. TYSABRI [Suspect]
     Indication: MULTIPLE SCLEROSIS
     Route: 042
     Dates: start: 20101209

REACTIONS (6)
  - ABDOMINAL PAIN LOWER [None]
  - FATIGUE [None]
  - ENDOMETRIAL HYPERTROPHY [None]
  - VAGINAL HAEMORRHAGE [None]
  - BALANCE DISORDER [None]
  - OVARIAN CYST [None]
